FAERS Safety Report 5892994-2 (Version None)
Quarter: 2008Q3

REPORT INFORMATION
  Report Type: 
  Country: None (occurrence: None)
  Receive Date: 20080923
  Receipt Date: 20080716
  Transmission Date: 20090109
  Serious: Yes (Hospitalization)
  Sender: FDA-Public Use
  Company Number: US-ASTRAZENECA-2007UW14236

PATIENT
  Age: 13272 Day
  Sex: Male
  Weight: 68 kg

DRUGS (3)
  1. SEROQUEL [Suspect]
     Indication: BIPOLAR DISORDER
     Route: 048
     Dates: start: 19990504
  2. HALDOL [Concomitant]
     Dates: start: 19990101
  3. RISPERDAL [Concomitant]
     Route: 048
     Dates: start: 19990101

REACTIONS (2)
  - DIABETES MELLITUS [None]
  - PANCREATITIS [None]
